FAERS Safety Report 7534413-6 (Version None)
Quarter: 2011Q2

REPORT INFORMATION
  Report Type: 
  Country: None (occurrence: None)
  Receive Date: 20110608
  Receipt Date: 20110531
  Transmission Date: 20111010
  Serious: Yes (Hospitalization, Disabling, Other)
  Sender: FDA-Public Use
  Company Number: US-MERCK-0906USA01734

PATIENT
  Age: 76 Year
  Sex: Female
  Weight: 50 kg

DRUGS (4)
  1. ACETAMINOPHEN AND PROPOXYPHENE NAPSYLATE [Concomitant]
     Route: 065
     Dates: start: 20030131, end: 20070104
  2. FOSAMAX [Suspect]
     Indication: OSTEOPOROSIS
     Route: 048
     Dates: start: 20020901, end: 20070601
  3. LEXAPRO [Concomitant]
     Route: 065
     Dates: start: 20031006, end: 20060414
  4. DIOVAN [Concomitant]
     Route: 065
     Dates: start: 20031006, end: 20070620

REACTIONS (41)
  - ATRIAL FIBRILLATION [None]
  - EJECTION FRACTION DECREASED [None]
  - OEDEMA [None]
  - INSOMNIA [None]
  - CARDIOMEGALY [None]
  - VENTRICULAR DYSFUNCTION [None]
  - URINARY TRACT INFECTION [None]
  - HYPOKALAEMIA [None]
  - HIP FRACTURE [None]
  - BREAST MASS [None]
  - TOOTHACHE [None]
  - SPINAL COMPRESSION FRACTURE [None]
  - CONSTIPATION [None]
  - ANAEMIA [None]
  - BONE LOSS [None]
  - HYPERTENSION [None]
  - DENTAL CARIES [None]
  - CORONARY ARTERY DISEASE [None]
  - CARDIAC FAILURE CONGESTIVE [None]
  - HYPERLIPIDAEMIA [None]
  - OSTEOMYELITIS [None]
  - ACUTE MYOCARDIAL INFARCTION [None]
  - MITRAL VALVE INCOMPETENCE [None]
  - VISION BLURRED [None]
  - INCREASED TENDENCY TO BRUISE [None]
  - ATRIAL SEPTAL DEFECT [None]
  - THYROID DISORDER [None]
  - RHEUMATOID NODULE [None]
  - DEPRESSION [None]
  - CHOLECYSTITIS [None]
  - TRICUSPID VALVE INCOMPETENCE [None]
  - PULMONARY HYPERTENSION [None]
  - INCISION SITE OEDEMA [None]
  - OSTEONECROSIS OF JAW [None]
  - SQUAMOUS CELL CARCINOMA [None]
  - HYPONATRAEMIA [None]
  - OSTEOARTHRITIS [None]
  - ISCHAEMIC CARDIOMYOPATHY [None]
  - LUMBAR SPINAL STENOSIS [None]
  - AMNESIA [None]
  - MASS [None]
